FAERS Safety Report 19765979 (Version 1)
Quarter: 2021Q3

REPORT INFORMATION
  Report Type: Spontaneous
  Country: AU (occurrence: AU)
  Receive Date: 20210831
  Receipt Date: 20210831
  Transmission Date: 20211014
  Serious: Yes (Other)
  Sender: FDA-Public Use
  Company Number: AU-AMGEN-AUSSP2021117254

PATIENT
  Age: 74 Year
  Sex: Female

DRUGS (11)
  1. FLUTIFORM [Concomitant]
     Active Substance: FLUTICASONE PROPIONATE\FORMOTEROL FUMARATE
     Dosage: I PUFF, BID
  2. VENTOLINE [SALBUTAMOL] [Concomitant]
     Active Substance: ALBUTEROL SULFATE
     Dosage: 2 PUFFS EVERY 4 HOURS P.R.N
  3. MOVICOL [Concomitant]
     Active Substance: POLYETHYLENE GLYCOL 3350\POTASSIUM CHLORIDE\SODIUM BICARBONATE\SODIUM CHLORIDE
     Dosage: I SACHET IN THE EVENING
  4. COVID?19 VACCINE [Concomitant]
     Dosage: UNK
  5. PROLIA [Suspect]
     Active Substance: DENOSUMAB
     Indication: BONE DISORDER
     Dosage: 60 MG/ML, Q6MO
     Route: 058
     Dates: start: 202101
  6. TEMAZEPAM. [Concomitant]
     Active Substance: TEMAZEPAM
     Dosage: 1 DOSAGE FORM IN THE EVENING
  7. ONDANSETRON [Concomitant]
     Active Substance: ONDANSETRON
     Dosage: 1 DOSAGE FORM P. R .N.
     Route: 048
  8. FLUAD QUAD [Concomitant]
     Dosage: UNK
  9. NEO B12 [Concomitant]
     Active Substance: HYDROXOCOBALAMIN
     Dosage: I INJECTION EVERY 3/12
  10. EPIPEN [Concomitant]
     Active Substance: EPINEPHRINE
     Dosage: 1 INJE P.R.N.
  11. COVID?19 VACCINE [Concomitant]
     Dosage: UNK

REACTIONS (3)
  - Nausea [Unknown]
  - Bronchiectasis [Unknown]
  - Off label use [Unknown]

NARRATIVE: CASE EVENT DATE: 2021
